FAERS Safety Report 20580650 (Version 2)
Quarter: 2022Q1

REPORT INFORMATION
  Report Type: Other
  Country: US (occurrence: None)
  Receive Date: 20220311
  Receipt Date: 20220329
  Transmission Date: 20220423
  Serious: Yes (Death, Hospitalization)
  Sender: FDA-Public Use
  Company Number: US-ROCHE-3039354

PATIENT
  Sex: Male

DRUGS (1)
  1. ALECENSA [Suspect]
     Active Substance: ALECTINIB HYDROCHLORIDE
     Indication: Lung neoplasm malignant
     Dosage: TAKE 4 CAPSULES PO BID
     Route: 048

REACTIONS (3)
  - Respiratory disorder [Unknown]
  - Lung neoplasm malignant [Fatal]
  - Asthenia [Not Recovered/Not Resolved]
